FAERS Safety Report 9772986 (Version 1)
Quarter: 2013Q4

REPORT INFORMATION
  Report Type: Spontaneous
  Country: US (occurrence: None)
  Receive Date: 20131217
  Receipt Date: 20131217
  Transmission Date: 20140711
  Serious: Yes (Other)
  Sender: FDA-Public Use
  Company Number: TR-DEXPHARM-20131142

PATIENT
  Age: 60 Year
  Sex: Female

DRUGS (1)
  1. OMEPRAZOLE [Suspect]
     Indication: DYSPEPSIA

REACTIONS (5)
  - Angioedema [None]
  - Dyspnoea [None]
  - Urticaria [None]
  - Palpitations [None]
  - Dizziness [None]
